FAERS Safety Report 17141614 (Version 1)
Quarter: 2019Q4

REPORT INFORMATION
  Report Type: Spontaneous
  Country: US (occurrence: US)
  Receive Date: 20191211
  Receipt Date: 20191211
  Transmission Date: 20200122
  Serious: No
  Sender: FDA-Public Use
  Company Number: US-SA-2019SA341807

PATIENT
  Age: 83 Year
  Sex: Female

DRUGS (12)
  1. FASENRA [Concomitant]
     Active Substance: BENRALIZUMAB
  2. NITROSTAT [Concomitant]
     Active Substance: NITROGLYCERIN
  3. ZYRTEC-D [Concomitant]
     Active Substance: CETIRIZINE HYDROCHLORIDE\PSEUDOEPHEDRINE HYDROCHLORIDE
  4. SINGULAIR [Concomitant]
     Active Substance: MONTELUKAST SODIUM
  5. CRESTOR [Concomitant]
     Active Substance: ROSUVASTATIN CALCIUM
  6. PRILOSEC [Concomitant]
     Active Substance: OMEPRAZOLE MAGNESIUM
  7. ASPRIN [Concomitant]
     Active Substance: ASPIRIN
  8. DUPIXENT [Suspect]
     Active Substance: DUPILUMAB
     Indication: ASTHMA
     Dosage: 600 MG, QOW
     Route: 058
     Dates: start: 20191101, end: 20191101
  9. TRAZODONE HYDROCHLORIDE. [Concomitant]
     Active Substance: TRAZODONE HYDROCHLORIDE
  10. ALEVE [Concomitant]
     Active Substance: NAPROXEN SODIUM
  11. XOLAIR [Concomitant]
     Active Substance: OMALIZUMAB
  12. VERAPAMIL [Concomitant]
     Active Substance: VERAPAMIL HYDROCHLORIDE

REACTIONS (3)
  - Dysgeusia [Unknown]
  - Insomnia [Unknown]
  - Asthma [Unknown]

NARRATIVE: CASE EVENT DATE: 20191122
